FAERS Safety Report 9279296 (Version 1)
Quarter: 2013Q2

REPORT INFORMATION
  Report Type: Spontaneous
  Country: None (occurrence: DE)
  Receive Date: 20130508
  Receipt Date: 20130508
  Transmission Date: 20140414
  Serious: Yes (Other)
  Sender: FDA-Public Use
  Company Number: DE-TEVA-402470GER

PATIENT
  Sex: 0

DRUGS (5)
  1. T-LONG [Suspect]
     Dosage: MATERNAL USE AT GESTATIONAL WEEK 36
     Route: 064
  2. MADOPAR [Suspect]
     Dosage: MATERNAL USE FROM GESTATIONAL WEEK 0-11.3: : 187.5/37.5 MG/DAY
     Route: 064
  3. HEROIN [Suspect]
     Dosage: MATERNAL USE FROM GESTATIONAL WEEK 0-11.3
     Route: 064
  4. METHADONE [Suspect]
     Dosage: MATERNAL USE FROM GESTATIONAL WEEK 11.3-36.1
     Route: 064
  5. DOXEPIN [Suspect]
     Dosage: MATERNAL USE AT GESTATIONAL WEEK 36
     Route: 064

REACTIONS (2)
  - Drug withdrawal syndrome neonatal [Recovered/Resolved]
  - Small for dates baby [Recovered/Resolved]
